FAERS Safety Report 24687270 (Version 1)
Quarter: 2024Q4

REPORT INFORMATION
  Report Type: Report from Study
  Country: US (occurrence: US)
  Receive Date: 20241202
  Receipt Date: 20241202
  Transmission Date: 20250114
  Serious: Yes (Death)
  Sender: PFIZER
  Company Number: US-PFIZER INC-PV202400151018

PATIENT

DRUGS (8)
  1. GEMCITABINE HYDROCHLORIDE [Suspect]
     Active Substance: GEMCITABINE HYDROCHLORIDE
     Indication: Diffuse large B-cell lymphoma refractory
     Dosage: ON CYCLE 1 , DAY 11 AND CYCLE 1, DAY 23 AND ON DAYS 2 AND 15 OF CYCLES 2 THROUGH 4
     Route: 042
  2. GEMCITABINE HYDROCHLORIDE [Suspect]
     Active Substance: GEMCITABINE HYDROCHLORIDE
     Indication: Diffuse large B-cell lymphoma recurrent
  3. OXALIPLATIN [Suspect]
     Active Substance: OXALIPLATIN
     Indication: Diffuse large B-cell lymphoma refractory
     Dosage: ON CYCLE 1 , DAY 11 AND CYCLE 1, DAY 23 AND ON DAYS 2 AND 15 OF CYCLES 2 THROUGH 4
     Route: 042
  4. OXALIPLATIN [Suspect]
     Active Substance: OXALIPLATIN
     Indication: Diffuse large B-cell lymphoma recurrent
  5. MAGROLIMAB [Suspect]
     Active Substance: MAGROLIMAB
     Indication: Diffuse large B-cell lymphoma refractory
     Dosage: PRIMING DOSE OF 1 MG/KG ON DAY 1, FOLLOWED BY WEEKLY (CYCLES 1-2) THEN BIWEEKLY (CYCLES }=3) MAINTEN
  6. MAGROLIMAB [Suspect]
     Active Substance: MAGROLIMAB
     Indication: Diffuse large B-cell lymphoma recurrent
  7. RITUXIMAB [Concomitant]
     Active Substance: RITUXIMAB
     Indication: Diffuse large B-cell lymphoma refractory
     Dosage: WEEKLY DURING THE FIRST CYCLE STARTING WITH DAY 8, FOLLOWED BY 1 DOSE MONTHLY ON DAY 1 OF CYCLES 2 T
     Route: 042
  8. RITUXIMAB [Concomitant]
     Active Substance: RITUXIMAB
     Indication: Diffuse large B-cell lymphoma recurrent

REACTIONS (1)
  - Colitis [Fatal]
